FAERS Safety Report 9955977 (Version 1)
Quarter: 2014Q1

REPORT INFORMATION
  Report Type: Report from Study
  Country: US (occurrence: US)
  Receive Date: 20140304
  Receipt Date: 20140304
  Transmission Date: 20141002
  Serious: No
  Sender: FDA-Public Use
  Company Number: US-ABBVIE-13P-163-1082730-00

PATIENT
  Age: 42 Year
  Sex: Female

DRUGS (7)
  1. HUMIRA [Suspect]
     Indication: COLITIS ULCERATIVE
     Dosage: LOADING DOSE
     Dates: start: 20130426
  2. ASACOL [Concomitant]
     Indication: COLITIS
  3. OMEPRAZOLE [Concomitant]
     Indication: GASTROOESOPHAGEAL REFLUX DISEASE
  4. AMBIEN [Concomitant]
     Indication: SLEEP DISORDER THERAPY
     Dosage: AT HOUR OF SLEEP
  5. KETOCONAZOLE [Concomitant]
     Indication: ADVERSE DRUG REACTION
     Dosage: DAILY TO BOTH FEET
  6. AMLACTIN [Concomitant]
     Indication: ADVERSE REACTION
     Dosage: DAILY TO BOTH FEET
  7. CLOBETASOL PROPIONATE [Concomitant]
     Indication: ADVERSE REACTION
     Dosage: DAILY TO BOTH FEET

REACTIONS (3)
  - Injection site papule [Not Recovered/Not Resolved]
  - Injection site warmth [Not Recovered/Not Resolved]
  - Injection site erythema [Not Recovered/Not Resolved]
